FAERS Safety Report 7080373-4 (Version None)
Quarter: 2010Q4

REPORT INFORMATION
  Report Type: 
  Country: None (occurrence: None)
  Receive Date: 20101103
  Receipt Date: 20101020
  Transmission Date: 20110411
  Serious: Yes (Hospitalization, Other)
  Sender: FDA-Public Use
  Company Number: US-ELI_LILLY_AND_COMPANY-US201009006569

PATIENT
  Sex: Female

DRUGS (6)
  1. FORTEO [Suspect]
     Indication: OSTEOPOROSIS
     Dosage: 20 UG, DAILY (1/D)
  2. METFORMIN [Concomitant]
     Dosage: 500 MG, 2/D
     Route: 065
  3. COZAAR [Concomitant]
     Dosage: UNK, UNKNOWN
     Route: 065
  4. AMITRIPTYLINE HCL [Concomitant]
     Dosage: 75 MG, DAILY (1/D)
     Route: 065
  5. NEURONTIN [Concomitant]
     Dosage: 300 MG, DAILY (1/D)
     Route: 065
  6. ASPIRIN [Concomitant]

REACTIONS (5)
  - FALL [None]
  - HOSPITALISATION [None]
  - KIDNEY INFECTION [None]
  - MUSCLE SPASMS [None]
  - NAUSEA [None]
